FAERS Safety Report 15698045 (Version 1)
Quarter: 2018Q4

REPORT INFORMATION
  Report Type: Spontaneous
  Country: CA (occurrence: CA)
  Receive Date: 20181206
  Receipt Date: 20181206
  Transmission Date: 20190205
  Serious: No
  Sender: FDA-Public Use
  Company Number: None

PATIENT
  Age: 24 Year
  Sex: Female
  Weight: 52 kg

DRUGS (5)
  1. VITAMIN B12 [Concomitant]
     Active Substance: CYANOCOBALAMIN
  2. PROBIOTICS [Concomitant]
     Active Substance: PROBIOTICS NOS
  3. OMEGA3 [Concomitant]
  4. MIRENA [Suspect]
     Active Substance: LEVONORGESTREL
     Indication: CONTRACEPTION
     Dosage: ?          QUANTITY:1 INTRAUTERINE DEVIC;?
     Route: 067
     Dates: start: 20180606, end: 20181205
  5. VITAMN D, [Concomitant]

REACTIONS (6)
  - Rash [None]
  - Eczema [None]
  - Product complaint [None]
  - Fungal infection [None]
  - Psoriasis [None]
  - Vulvovaginal rash [None]

NARRATIVE: CASE EVENT DATE: 20180610
